FAERS Safety Report 7952385-7 (Version None)
Quarter: 2011Q4

REPORT INFORMATION
  Report Type: 
  Country: None (occurrence: None)
  Receive Date: 20111201
  Receipt Date: 20111122
  Transmission Date: 20120403
  Serious: Yes (Hospitalization)
  Sender: FDA-Public Use
  Company Number: US-GLAXOSMITHKLINE-A0752687A

PATIENT
  Age: 55 Year
  Sex: Male
  Weight: 86.4 kg

DRUGS (6)
  1. METFORMIN HCL [Concomitant]
  2. GLUCOTROL [Concomitant]
  3. LISINOPRIL [Concomitant]
  4. AMARYL [Concomitant]
  5. AVANDIA [Suspect]
     Indication: DIABETES MELLITUS
     Dosage: 4MG PER DAY
     Route: 048
     Dates: start: 20020306, end: 20070310
  6. LIPITOR [Concomitant]

REACTIONS (3)
  - CORONARY ARTERY DISEASE [None]
  - MYOCARDIAL INFARCTION [None]
  - ARTERIOSCLEROSIS CORONARY ARTERY [None]
